FAERS Safety Report 9678378 (Version 1)
Quarter: 2013Q4

REPORT INFORMATION
  Report Type: Report from Study
  Country: US (occurrence: US)
  Receive Date: 20131108
  Receipt Date: 20131108
  Transmission Date: 20140711
  Serious: Yes (Other)
  Sender: FDA-Public Use
  Company Number: US-SA-2013SA107293

PATIENT
  Sex: Male

DRUGS (7)
  1. OXALIPLATIN [Suspect]
     Indication: PROSTATE CANCER METASTATIC
     Route: 042
  2. OXALIPLATIN [Suspect]
     Indication: PROSTATE CANCER METASTATIC
     Route: 042
  3. PEMETREXED [Suspect]
     Indication: PROSTATE CANCER METASTATIC
     Route: 042
  4. PEMETREXED [Suspect]
     Indication: PROSTATE CANCER METASTATIC
     Route: 042
  5. FOLIC ACID [Concomitant]
  6. VITAMIN B12 [Concomitant]
  7. DEXAMETHASONE [Concomitant]
     Route: 048

REACTIONS (2)
  - Pleural effusion [Unknown]
  - Dyspnoea [Unknown]
